FAERS Safety Report 7971082-5 (Version None)
Quarter: 2011Q4

REPORT INFORMATION
  Report Type: 
  Country: None (occurrence: None)
  Receive Date: 20111212
  Receipt Date: 20111212
  Transmission Date: 20120403
  Serious: Yes (Other)
  Sender: FDA-Public Use
  Company Number: None

PATIENT
  Sex: Male
  Weight: 77.11 kg

DRUGS (1)
  1. ADDERALL 5 [Suspect]
     Indication: ATTENTION DEFICIT/HYPERACTIVITY DISORDER
     Dosage: 20MG
     Route: 048

REACTIONS (7)
  - PRODUCT SUBSTITUTION ISSUE [None]
  - NAUSEA [None]
  - PRODUCT COUNTERFEIT [None]
  - HEART RATE INCREASED [None]
  - PRODUCT MEASURED POTENCY ISSUE [None]
  - PRODUCT FORMULATION ISSUE [None]
  - DRUG INEFFECTIVE [None]
